FAERS Safety Report 13523592 (Version 1)
Quarter: 2017Q2

REPORT INFORMATION
  Report Type: Spontaneous
  Country: US (occurrence: US)
  Receive Date: 20170508
  Receipt Date: 20170508
  Transmission Date: 20170830
  Serious: No
  Sender: FDA-Public Use
  Company Number: US-VIFOR (INTERNATIONAL) INC.-VIT-2017-02119

PATIENT
  Sex: Female

DRUGS (11)
  1. LYRICA [Concomitant]
     Active Substance: PREGABALIN
  2. METOPROLOL SUCCINATE. [Concomitant]
     Active Substance: METOPROLOL SUCCINATE
  3. MULTIVITAMIN ADULT [Concomitant]
  4. ERGOCALCIFEROL. [Concomitant]
     Active Substance: ERGOCALCIFEROL
  5. LASIX [Concomitant]
     Active Substance: FUROSEMIDE
  6. COLECALCIFEROL [Concomitant]
     Active Substance: CHOLECALCIFEROL
  7. NOVOLOG [Concomitant]
     Active Substance: INSULIN ASPART
  8. HUMALOG MIX [Concomitant]
     Active Substance: INSULIN LISPRO
  9. ACETYLSALICYLIC ACID [Concomitant]
     Active Substance: ASPIRIN
  10. TYLENOL [Concomitant]
     Active Substance: ACETAMINOPHEN
  11. VELTASSA [Suspect]
     Active Substance: PATIROMER
     Indication: HYPERKALAEMIA
     Route: 048
     Dates: start: 20161028

REACTIONS (2)
  - Unevaluable event [Unknown]
  - Dysuria [Recovered/Resolved]
